FAERS Safety Report 9579889 (Version 1)
Quarter: 2013Q3

REPORT INFORMATION
  Report Type: Spontaneous
  Country: US (occurrence: None)
  Receive Date: 20130930
  Receipt Date: 20130930
  Transmission Date: 20140515
  Serious: Yes (Hospitalization, Disabling, Other)
  Sender: FDA-Public Use
  Company Number: None

PATIENT
  Age: 27 Year
  Sex: Female
  Weight: 74.39 kg

DRUGS (4)
  1. MIRENA [Suspect]
     Route: 015
     Dates: start: 20121019, end: 201305
  2. KLONIPIN [Concomitant]
  3. TRAZADONE [Concomitant]
  4. ABILIFY [Concomitant]

REACTIONS (5)
  - Migraine [None]
  - Visual impairment [None]
  - Papilloedema [None]
  - Benign intracranial hypertension [None]
  - Medical device complication [None]
